FAERS Safety Report 5444371-6 (Version None)
Quarter: 2007Q3

REPORT INFORMATION
  Report Type: 
  Country: None (occurrence: None)
  Receive Date: 20070906
  Receipt Date: 20070830
  Transmission Date: 20080115
  Serious: Yes (Other)
  Sender: FDA-Public Use
  Company Number: PHEH2007US06414

PATIENT
  Age: 61 Year
  Sex: Female

DRUGS (5)
  1. ZOMETA [Suspect]
     Indication: METASTASES TO BONE
     Dosage: 4 MG MONTHLY
     Route: 042
     Dates: start: 20061106, end: 20070206
  2. ZOMETA [Suspect]
     Dosage: 4 MG MONTHLY
     Route: 042
     Dates: start: 20050901, end: 20060905
  3. TAXOTERE [Concomitant]
     Indication: METASTASIS
     Dosage: 80 MG, UNK
     Dates: start: 20050224, end: 20050602
  4. DECADRON [Concomitant]
     Dosage: 20 MG, UNK
     Route: 042
     Dates: start: 20050224, end: 20050224
  5. DECADRON [Concomitant]
     Dosage: 8 MG PM AND AM BEFORE CHEMOTHERAPY
     Dates: start: 20050224, end: 20050602

REACTIONS (3)
  - ENDODONTIC PROCEDURE [None]
  - ORAL CAVITY FISTULA [None]
  - TOOTH INFECTION [None]
